FAERS Safety Report 8933759 (Version 1)
Quarter: 2012Q4

REPORT INFORMATION
  Report Type: 
  Country: US (occurrence: US)
  Receive Date: 20121129
  Receipt Date: 20121129
  Transmission Date: 20130627
  Serious: Yes (Other)
  Sender: FDA-Public Use
  Company Number: US-ELI_LILLY_AND_COMPANY-US201211006405

PATIENT
  Age: 57 Year
  Sex: Female

DRUGS (6)
  1. CYMBALTA [Suspect]
     Indication: DEPRESSION
     Dosage: 60 mg, qd
     Dates: end: 20121103
  2. CYMBALTA [Suspect]
     Dosage: 30 mg, qd
     Dates: start: 20121104, end: 20121110
  3. FLUOXETINE [Concomitant]
     Dosage: 20 mg, UNK
     Dates: start: 20121020
  4. VICODIN [Concomitant]
     Indication: PAIN
  5. LEVOTHROID [Concomitant]
  6. LISINOPRIL [Concomitant]

REACTIONS (14)
  - Suicidal ideation [Unknown]
  - Knee operation [Unknown]
  - Drug withdrawal syndrome [Unknown]
  - Anxiety [Unknown]
  - Hallucination [Unknown]
  - Crying [Unknown]
  - Retching [Unknown]
  - Balance disorder [Unknown]
  - Tremor [Unknown]
  - Visual impairment [Unknown]
  - Dizziness [Unknown]
  - Paraesthesia [Unknown]
  - Arthralgia [Unknown]
  - Emotional poverty [Unknown]
